FAERS Safety Report 4661249-6 (Version None)
Quarter: 2005Q2

REPORT INFORMATION
  Report Type: 
  Country: None (occurrence: None)
  Receive Date: 20050429
  Receipt Date: 20041029
  Transmission Date: 20051028
  Serious: Yes (Hospitalization)
  Sender: FDA-Public Use
  Company Number: 2004089178

PATIENT
  Age: 34 Year
  Sex: Male

DRUGS (3)
  1. BENADRYL [Suspect]
     Indication: INSOMNIA
     Dosage: 100 MG TO 15-16 25 MG PILLS, ORAL
     Route: 048
  2. PEGINTERFERON ALFA-2B (PEGINTERFERON ALFA-2B) [Suspect]
     Indication: HEPATITIS C
     Dosage: EVERY WEEK (DOSE UNSPECIFIED),SUBCUTANEOUS
     Route: 058
     Dates: start: 20040804
  3. RIBAVIRIN [Suspect]
     Indication: HEPATITIS C
     Dosage: ORAL
     Route: 048
     Dates: start: 20040804

REACTIONS (3)
  - ACCIDENTAL OVERDOSE [None]
  - BIPOLAR DISORDER [None]
  - DRUG INEFFECTIVE [None]
